FAERS Safety Report 22751598 (Version 4)
Quarter: 2023Q4

REPORT INFORMATION
  Report Type: Spontaneous
  Country: US (occurrence: US)
  Receive Date: 20230726
  Receipt Date: 20231012
  Transmission Date: 20240110
  Serious: No
  Sender: FDA-Public Use
  Company Number: US-PFIZER INC-202300256238

PATIENT
  Age: 14 Year
  Sex: Female

DRUGS (5)
  1. GENOTROPIN [Suspect]
     Active Substance: SOMATROPIN
     Indication: Turner^s syndrome
     Dosage: 2 MG, 1X/DAY (AT NIGHT)
  2. MELATONIN [Concomitant]
     Active Substance: MELATONIN
     Indication: Attention deficit hyperactivity disorder
     Dosage: 10 MG, DAILY (EVERY NIGHT)
  3. MELATONIN [Concomitant]
     Active Substance: MELATONIN
     Indication: Insomnia
  4. FLONASE [Concomitant]
     Active Substance: FLUTICASONE PROPIONATE
     Indication: Seasonal allergy
     Dosage: 2 PUMPS EACH NOSTRIL ABOUT 4 DAYS A WEEK
     Route: 055
  5. FLONASE [Concomitant]
     Active Substance: FLUTICASONE PROPIONATE
     Indication: Sinusitis

REACTIONS (5)
  - Drug dose omission by device [Unknown]
  - Poor quality device used [Unknown]
  - Poor quality product administered [Unknown]
  - Device mechanical issue [Unknown]
  - Liquid product physical issue [Unknown]

NARRATIVE: CASE EVENT DATE: 20230101
